FAERS Safety Report 8557362-3 (Version None)
Quarter: 2012Q3

REPORT INFORMATION
  Report Type: 
  Country: None (occurrence: None)
  Receive Date: 20120801
  Receipt Date: 20120730
  Transmission Date: 20120928
  Serious: Yes (Death)
  Sender: FDA-Public Use
  Company Number: JP-PFIZER INC-2012183561

PATIENT
  Age: 91 Year
  Sex: Female

DRUGS (2)
  1. AMLODIPINE BESYLATE [Suspect]
     Indication: HYPERTENSION
     Dosage: 10 MG, 1X/DAY
     Route: 048
     Dates: start: 20120111, end: 20120528
  2. MOTILIUM [Concomitant]
     Indication: GASTRITIS PROPHYLAXIS
     Dosage: UNK
     Route: 048
     Dates: end: 20120528

REACTIONS (1)
  - DEATH [None]
